FAERS Safety Report 8441540 (Version 2)
Quarter: 2013Q1

REPORT INFORMATION
  Report Type: Spontaneous
  Country: US (occurrence: US)
  Receive Date: 20120305
  Receipt Date: 20130131
  Transmission Date: 20140127
  Serious: Yes (Other)
  Sender: FDA-Public Use
  Company Number: US-PFIZER INC-2012053934

PATIENT
  Age: 74 Year
  Sex: Female

DRUGS (21)
  1. DETROL LA [Suspect]
     Dosage: 4 MG, 1X/DAY (1 PO DAILY)
     Route: 048
  2. NITROSTAT [Suspect]
     Dosage: 0.4 MG
  3. LASIX [Concomitant]
     Dosage: 20 MG, UNK
  4. PRILOSEC [Concomitant]
     Dosage: 20 MG, UNK
  5. KENALOG [Concomitant]
     Dosage: UNK
  6. CIPRO [Concomitant]
     Dosage: 500 MG, UNK
  7. PERCOCET [Concomitant]
     Dosage: 5-325MG,UNK
  8. MEVACOR [Concomitant]
     Dosage: 40 MG, UNK
  9. COUMADIN [Concomitant]
     Dosage: 2 MG, UNK
  10. NORCO [Concomitant]
     Dosage: 7.5-325MG, UNK
  11. PEPCID [Concomitant]
     Dosage: 20 MG, UNK
  12. TOPROL XL [Concomitant]
     Dosage: 50 MG, UNK
  13. ASPIRIN [Concomitant]
     Dosage: 81 MG, UNK
  14. CALCIUM-VITAMIN D3 [Concomitant]
     Dosage: UNK
     Route: 048
  15. AMARYL [Concomitant]
     Dosage: 4 MG, UNK
  16. GLUCOSAMINE CHONDR COMPLEX [Concomitant]
     Dosage: UNK
     Route: 048
  17. ISOSORBIDE MONONITRATE [Concomitant]
     Dosage: 30 MG, UNK
  18. JANUVIA [Concomitant]
     Dosage: 100 MG, UNK
  19. CARMOL [Concomitant]
     Dosage: UNK
  20. ZETIA [Concomitant]
     Dosage: 10 MG, UNK
  21. VANAMIDE [Concomitant]
     Dosage: UNK

REACTIONS (2)
  - Cardiac operation [Unknown]
  - Diabetes mellitus [Unknown]
